FAERS Safety Report 12125434 (Version 2)
Quarter: 2016Q3

REPORT INFORMATION
  Report Type: Spontaneous
  Country: US (occurrence: US)
  Receive Date: 20160229
  Receipt Date: 20160815
  Transmission Date: 20161109
  Serious: No
  Sender: FDA-Public Use
  Company Number: US-ASTRAZENECA-2015SE96364

PATIENT
  Age: 895 Month
  Sex: Female
  Weight: 76.2 kg

DRUGS (12)
  1. TOPROL XL [Suspect]
     Active Substance: METOPROLOL SUCCINATE
     Indication: HYPERTENSION
     Route: 048
     Dates: start: 201507
  2. CALTRATE [Concomitant]
     Active Substance: CALCIUM CARBONATE
     Indication: SUPPLEMENTATION THERAPY
     Route: 065
  3. BENADRYL [Concomitant]
     Active Substance: DIPHENHYDRAMINE HYDROCHLORIDE
     Indication: SLEEP DISORDER
  4. ZEGERID [Concomitant]
     Active Substance: OMEPRAZOLE\SODIUM BICARBONATE
     Indication: ANTACID THERAPY
  5. TOPROL XL [Suspect]
     Active Substance: METOPROLOL SUCCINATE
     Indication: HYPERTENSION
     Dosage: PAR^S, 200 MG DAILY, A/MY
     Route: 048
  6. TOPROL XL [Suspect]
     Active Substance: METOPROLOL SUCCINATE
     Indication: HYPERTENSION
     Dosage: PAR^S, 1 TABLET ONCE A DAY
     Route: 048
  7. TOPROL XL [Suspect]
     Active Substance: METOPROLOL SUCCINATE
     Indication: HYPERTENSION
     Dosage: WATSON  50MG DAILY
     Route: 048
     Dates: start: 201507, end: 201507
  8. TOPROL XL [Suspect]
     Active Substance: METOPROLOL SUCCINATE
     Indication: HYPERTENSION
     Dosage: PAR^S, 200 MG DAILY, A/MO
     Route: 048
     Dates: start: 20160203
  9. TOPROL XL [Suspect]
     Active Substance: METOPROLOL SUCCINATE
     Indication: HYPERTENSION
     Dosage: PAR^S, 200 MG DAILY, M50
     Route: 048
  10. ACIPHEX [Concomitant]
     Active Substance: RABEPRAZOLE SODIUM
     Indication: PRODUCT USED FOR UNKNOWN INDICATION
     Dosage: UNKNOWN
     Route: 065
  11. TOPROL XL [Suspect]
     Active Substance: METOPROLOL SUCCINATE
     Indication: HYPERTENSION
     Dosage: PAR^S, 200 MG DAILY, M 200
     Route: 048
  12. VITAMIN D 3 [Concomitant]
     Indication: SUPPLEMENTATION THERAPY
     Route: 065

REACTIONS (12)
  - Diarrhoea [Not Recovered/Not Resolved]
  - Feeling jittery [Recovered/Resolved]
  - Product label issue [Unknown]
  - Abasia [Recovering/Resolving]
  - Discomfort [Recovered/Resolved]
  - Malaise [Not Recovered/Not Resolved]
  - Headache [Not Recovered/Not Resolved]
  - Dizziness [Not Recovered/Not Resolved]
  - Rash [Not Recovered/Not Resolved]
  - Nausea [Not Recovered/Not Resolved]
  - Visual acuity reduced [Unknown]
  - Paraesthesia oral [Not Recovered/Not Resolved]

NARRATIVE: CASE EVENT DATE: 201507
